FAERS Safety Report 8360407-7 (Version None)
Quarter: 2012Q1

REPORT INFORMATION
  Report Type: 
  Country: None (occurrence: None)
  Receive Date: 20120323
  Receipt Date: 20110523
  Transmission Date: 20120608
  Serious: Yes (Other)
  Sender: FDA-Public Use
  Company Number: 163-21880-11042915

PATIENT
  Age: 83 Year
  Sex: Male
  Weight: 68.5 kg

DRUGS (1)
  1. REVLIMID [Suspect]
     Indication: MULTIPLE MYELOMA
     Dosage: 25 MG, DAILY X 21 DAYS, 7 DAYS OFF, PO
     Route: 048
     Dates: start: 20100917, end: 20110504

REACTIONS (10)
  - CELLULITIS [None]
  - COUGH [None]
  - RHINORRHOEA [None]
  - NEOPLASM PROGRESSION [None]
  - RESTLESSNESS [None]
  - LEUKOPENIA [None]
  - NEUTROPENIA [None]
  - FEELING ABNORMAL [None]
  - FEELING JITTERY [None]
  - MULTIPLE MYELOMA [None]
